FAERS Safety Report 7469249-8 (Version None)
Quarter: 2011Q2

REPORT INFORMATION
  Report Type: 
  Country: None (occurrence: None)
  Receive Date: 20110510
  Receipt Date: 20110503
  Transmission Date: 20111010
  Serious: Yes (Hospitalization, Disabling)
  Sender: FDA-Public Use
  Company Number: US-BAYER-2011-038732

PATIENT
  Sex: Female

DRUGS (1)
  1. YAZ [Suspect]
     Route: 048

REACTIONS (5)
  - INJURY [None]
  - PAIN [None]
  - ANHEDONIA [None]
  - GALLBLADDER DISORDER [None]
  - ANXIETY [None]
